FAERS Safety Report 23901731 (Version 1)
Quarter: 2024Q2

REPORT INFORMATION
  Report Type: Spontaneous
  Country: US (occurrence: None)
  Receive Date: 20240526
  Receipt Date: 20240526
  Transmission Date: 20240716
  Serious: No
  Sender: FDA-Public Use
  Company Number: US-ROCHE-3367532

PATIENT
  Sex: Female

DRUGS (1)
  1. OCREVUS [Suspect]
     Active Substance: OCRELIZUMAB
     Indication: Relapsing-remitting multiple sclerosis
     Dosage: SHE RECEIVED DAY 15 OCREVUS ON 27/MAR/2023
     Route: 042
     Dates: start: 20230313

REACTIONS (2)
  - Abdominal pain upper [Unknown]
  - Maternal exposure during pregnancy [Unknown]
